APPROVED DRUG PRODUCT: PROPOXYPHENE HYDROCHLORIDE W/ ASPIRIN AND CAFFEINE
Active Ingredient: ASPIRIN; CAFFEINE; PROPOXYPHENE HYDROCHLORIDE
Strength: 389MG;32.4MG;65MG
Dosage Form/Route: CAPSULE;ORAL
Application: A085732 | Product #002
Applicant: WATSON LABORATORIES INC
Approved: Sep 3, 1984 | RLD: No | RS: No | Type: DISCN